FAERS Safety Report 15305346 (Version 1)
Quarter: 2018Q3

REPORT INFORMATION
  Report Type: Spontaneous
  Country: US (occurrence: US)
  Receive Date: 20180810
  Receipt Date: 20180810
  Transmission Date: 20181010
  Serious: Yes (Hospitalization)
  Sender: FDA-Public Use
  Company Number: None

PATIENT
  Age: 81 Year
  Sex: Female

DRUGS (14)
  1. MULTI [Concomitant]
     Dates: start: 20130910
  2. HYQVIA [Suspect]
     Active Substance: HUMAN IMMUNOGLOBULIN G\HYALURONIDASE RECOMBINANT HUMAN
     Indication: IMMUNODEFICIENCY
     Route: 058
     Dates: start: 20150819
  3. IPRATROPIUM POW [Concomitant]
     Dates: start: 20130910
  4. ZETIA [Concomitant]
     Active Substance: EZETIMIBE
     Dates: start: 20130910
  5. CHOLECALCIF POW [Concomitant]
     Dates: start: 20130910
  6. FUROSEMIDE. [Concomitant]
     Active Substance: FUROSEMIDE
     Dates: start: 20130910
  7. POT CHLORIDE [Concomitant]
     Active Substance: POTASSIUM CHLORIDE
     Dates: start: 20130910
  8. MONTELUKAST [Concomitant]
     Active Substance: MONTELUKAST SODIUM
     Dates: start: 20130910
  9. VICTOZA [Concomitant]
     Active Substance: LIRAGLUTIDE
     Dates: start: 20130910
  10. METOPROL TAR [Concomitant]
     Dates: start: 20130910
  11. COUMADIN [Concomitant]
     Active Substance: WARFARIN SODIUM
     Dates: start: 20130910
  12. LIVALO [Concomitant]
     Active Substance: PITAVASTATIN CALCIUM
     Dates: start: 20130910
  13. PANTOPRAZOLE [Concomitant]
     Active Substance: PANTOPRAZOLE
     Dates: start: 20130910
  14. TRESIBA FLEX [Concomitant]
     Dates: start: 20170508

REACTIONS (2)
  - Cardiac failure congestive [None]
  - Anaemia [None]

NARRATIVE: CASE EVENT DATE: 20180809
